FAERS Safety Report 5420190-1 (Version None)
Quarter: 2007Q3

REPORT INFORMATION
  Report Type: 
  Country: None (occurrence: None)
  Receive Date: 20070820
  Receipt Date: 20070802
  Transmission Date: 20080115
  Serious: No
  Sender: FDA-Public Use
  Company Number: US-BOEHRINGER INGELHEIM PHARMACEUTICALS, INC.-2007-BP-17425BP

PATIENT
  Age: 55 Year
  Sex: Female

DRUGS (4)
  1. AGGRENOX [Suspect]
     Indication: CEREBROVASCULAR ACCIDENT PROPHYLAXIS
     Route: 048
     Dates: start: 20070713, end: 20070714
  2. AGGRENOX [Suspect]
     Indication: TRANSIENT ISCHAEMIC ATTACK
  3. AGGRENOX [Suspect]
     Indication: HYPOAESTHESIA
  4. TOPROL-XL [Concomitant]
     Indication: EXTRASYSTOLES

REACTIONS (5)
  - DIZZINESS [None]
  - FEELING OF BODY TEMPERATURE CHANGE [None]
  - HEADACHE [None]
  - NAUSEA [None]
  - VOMITING [None]
